FAERS Safety Report 6015522-X (Version None)
Quarter: 2008Q4

REPORT INFORMATION
  Report Type: 
  Country: None (occurrence: None)
  Receive Date: 20081222
  Receipt Date: 20081217
  Transmission Date: 20090506
  Serious: Yes (Hospitalization)
  Sender: FDA-Public Use
  Company Number: GB-ABBOTT-08P-167-0479841-00

PATIENT
  Age: 14 Year
  Sex: Female

DRUGS (8)
  1. VALPROIC ACID [Suspect]
     Indication: EPILEPSY
     Route: 048
     Dates: start: 20080601, end: 20080901
  2. BETNOVATE [Concomitant]
     Indication: ECZEMA
  3. FUCIBET [Concomitant]
     Indication: ECZEMA
     Route: 061
     Dates: end: 20080901
  4. HYDROMOL [Concomitant]
     Indication: ECZEMA
  5. LAMOTRIGINE [Concomitant]
     Indication: EPILEPSY
     Route: 048
     Dates: start: 20051201
  6. MIDAZOLAM [Concomitant]
     Indication: CONVULSION
     Route: 002
     Dates: start: 20040501
  7. CETIRIZINE HCL [Concomitant]
     Indication: SEASONAL ALLERGY
     Route: 048
     Dates: start: 20080801, end: 20080901
  8. CETIRIZINE HCL [Concomitant]
     Indication: RASH

REACTIONS (2)
  - ECZEMA [None]
  - PSORIASIS [None]
